FAERS Safety Report 5237036-7 (Version None)
Quarter: 2007Q1

REPORT INFORMATION
  Report Type: 
  Country: None (occurrence: None)
  Receive Date: 20070209
  Receipt Date: 20070208
  Transmission Date: 20070707
  Serious: Yes (Death)
  Sender: FDA-Public Use
  Company Number: 2007-154040-NL

PATIENT
  Age: 29 Year
  Sex: Male

DRUGS (4)
  1. NANDROLONE DECANOATE [Suspect]
     Dosage: DF;
  2. TESTOSTERONE [Suspect]
     Dosage: DF
  3. STANOZOLOL [Concomitant]
  4. TESTOSTERONE HEXAHYDROBENZOATE [Concomitant]

REACTIONS (6)
  - CARDIAC DISORDER [None]
  - DRUG ABUSER [None]
  - FALL [None]
  - MYOCARDIAL FIBROSIS [None]
  - NECROSIS [None]
  - SUDDEN CARDIAC DEATH [None]
